FAERS Safety Report 24910658 (Version 8)
Quarter: 2025Q2

REPORT INFORMATION
  Report Type: Spontaneous
  Country: IN (occurrence: IN)
  Receive Date: 20250131
  Receipt Date: 20250514
  Transmission Date: 20250717
  Serious: Yes (Hospitalization, Other)
  Sender: PFIZER
  Company Number: IN-PFIZER INC-PV202500011588

PATIENT
  Age: 39 Year
  Sex: Female

DRUGS (7)
  1. LORLATINIB [Suspect]
     Active Substance: LORLATINIB
     Indication: Lung neoplasm malignant
     Dosage: 100 MG, ONCE A DAY, DAILY
     Route: 048
     Dates: start: 202404
  2. LORLATINIB [Suspect]
     Active Substance: LORLATINIB
     Dosage: 100 MG, OD
     Route: 048
     Dates: start: 20250117
  3. LORLATINIB [Suspect]
     Active Substance: LORLATINIB
     Dosage: 100 MG, ALTERNATE DAY
     Route: 048
  4. LORLATINIB [Suspect]
     Active Substance: LORLATINIB
     Dosage: 100 MG, OD
     Route: 048
  5. URSODIOL [Concomitant]
     Active Substance: URSODIOL
  6. LEVETIRACETAM [Concomitant]
     Active Substance: LEVETIRACETAM
  7. MEGESTROL [Concomitant]
     Active Substance: MEGESTROL

REACTIONS (16)
  - Paralysis [Not Recovered/Not Resolved]
  - Metastases to spine [Not Recovered/Not Resolved]
  - Speech disorder [Not Recovered/Not Resolved]
  - Muscle spasms [Not Recovered/Not Resolved]
  - Paraplegia [Not Recovered/Not Resolved]
  - Urinary tract disorder [Not Recovered/Not Resolved]
  - Insomnia [Not Recovered/Not Resolved]
  - Pain [Unknown]
  - Weight decreased [Unknown]
  - Weight increased [Unknown]
  - Fatigue [Unknown]
  - Asthenia [Unknown]
  - Hypersomnia [Not Recovered/Not Resolved]
  - Spinal pain [Not Recovered/Not Resolved]
  - Constipation [Not Recovered/Not Resolved]
  - Off label use [Unknown]

NARRATIVE: CASE EVENT DATE: 20250101
